FAERS Safety Report 5835426-2 (Version None)
Quarter: 2008Q3

REPORT INFORMATION
  Report Type: 
  Country: None (occurrence: None)
  Receive Date: 20080806
  Receipt Date: 20080801
  Transmission Date: 20090109
  Serious: Yes (Hospitalization)
  Sender: FDA-Public Use
  Company Number: PL-JNJFOC-20080706310

PATIENT
  Age: 22 Month
  Sex: Female

DRUGS (8)
  1. IBUPROFEN TABLETS [Suspect]
     Indication: SNEEZING
  2. IBUPROFEN TABLETS [Suspect]
     Indication: COUGH
  3. IBUPROFEN TABLETS [Suspect]
     Indication: PYREXIA
     Dosage: TWO DOSES PRIOR TO ADMISSION
  4. ACETAMINOPHEN [Suspect]
     Indication: SNEEZING
  5. ACETAMINOPHEN [Suspect]
     Indication: COUGH
  6. ACETAMINOPHEN [Suspect]
     Indication: PYREXIA
  7. ANTIBIOTIC [Concomitant]
  8. OTHER UNSPECIFIED MEDICATIONS [Concomitant]

REACTIONS (1)
  - GASTRITIS HAEMORRHAGIC [None]
